FAERS Safety Report 12227757 (Version 2)
Quarter: 2016Q2

REPORT INFORMATION
  Report Type: Spontaneous
  Country: JP (occurrence: JP)
  Receive Date: 20160401
  Receipt Date: 20160427
  Transmission Date: 20160815
  Serious: Yes (Other)
  Sender: FDA-Public Use
  Company Number: JP-009507513-1603JPN000621

PATIENT
  Age: 75 Year
  Sex: Female

DRUGS (8)
  1. NICORANDIL [Suspect]
     Active Substance: NICORANDIL
     Indication: ANGINA PECTORIS
     Dosage: DAILY DOSAGE UNKNOWN
     Route: 065
  2. AMLODIN (AMLODIPINE BESYLATE) [Concomitant]
     Active Substance: AMLODIPINE BESYLATE
     Dosage: DAILY DOSAGE UNKNOWN
     Route: 048
  3. NIKORANMART [Concomitant]
     Active Substance: NICORANDIL
     Dosage: DAILY DOSAGE UNKNOWN
     Route: 048
  4. BRIDION [Suspect]
     Active Substance: SUGAMMADEX
     Dosage: DAILY DOSAGE UNKNOWN
     Route: 042
     Dates: start: 201410, end: 201410
  5. OLMETEC [Concomitant]
     Active Substance: OLMESARTAN MEDOXOMIL
     Dosage: DAILY DOSE UNKNOWN
     Route: 048
  6. GLIMEPIRIDE. [Concomitant]
     Active Substance: GLIMEPIRIDE
     Dosage: DAILY DOSE UNKNOWN
     Route: 048
  7. BRIDION [Suspect]
     Active Substance: SUGAMMADEX
     Dosage: DAILY DOSAGE UNKNOWN
     Route: 042
     Dates: start: 20160223, end: 20160223
  8. METGLUCO [Concomitant]
     Active Substance: METFORMIN HYDROCHLORIDE
     Dosage: DAILY DOSE UNKNOWN
     Route: 048

REACTIONS (2)
  - Flushing [Recovered/Resolved]
  - Pruritus [Recovered/Resolved]

NARRATIVE: CASE EVENT DATE: 20160223
